FAERS Safety Report 21578852 (Version 1)
Quarter: 2022Q4

REPORT INFORMATION
  Report Type: Spontaneous
  Country: GB (occurrence: GB)
  Receive Date: 20221110
  Receipt Date: 20221110
  Transmission Date: 20230112
  Serious: Yes (Other)
  Sender: FDA-Public Use
  Company Number: None

PATIENT
  Age: 63 Year
  Sex: Female
  Weight: 50 kg

DRUGS (6)
  1. PENICILLIN G SODIUM [Suspect]
     Active Substance: PENICILLIN G SODIUM
     Indication: Ill-defined disorder
     Dosage: UNK
     Route: 065
     Dates: start: 20221108
  2. ARTHROTEC [Concomitant]
     Active Substance: DICLOFENAC SODIUM\MISOPROSTOL
     Indication: Ill-defined disorder
     Dosage: UNK (ONE TO BE TAKEN THREE TIMES A DAY AS REQUIRED)
     Route: 065
     Dates: start: 20220815
  3. CITALOPRAM [Concomitant]
     Active Substance: CITALOPRAM HYDROBROMIDE
     Indication: Ill-defined disorder
     Dosage: UNK 2 DAILY (DO NOT EXCEED THIS)
     Route: 065
     Dates: start: 20220207
  4. MIRTAZAPINE [Concomitant]
     Active Substance: MIRTAZAPINE
     Indication: Ill-defined disorder
     Dosage: 1 DOSAGE FORM, QD  (TAKE ONE TABLET EACH NIGHT)
     Route: 065
     Dates: start: 20220207
  5. ROPINIROLE [Concomitant]
     Active Substance: ROPINIROLE
     Indication: Ill-defined disorder
     Dosage: UNK, QD (ONCE DAILY)
     Route: 065
     Dates: start: 20220207
  6. VAGIFEM [Concomitant]
     Active Substance: ESTRADIOL
     Indication: Ill-defined disorder
     Dosage: UNK (ONE DAILY FOR TWO WEEKS THEN ONE TWICE PER WEEK)
     Route: 065
     Dates: start: 20220207

REACTIONS (1)
  - Adverse drug reaction [Unknown]

NARRATIVE: CASE EVENT DATE: 20221108
